FAERS Safety Report 8611836-5 (Version None)
Quarter: 2012Q3

REPORT INFORMATION
  Report Type: 
  Country: None (occurrence: None)
  Receive Date: 20120822
  Receipt Date: 20120813
  Transmission Date: 20120928
  Serious: Yes (Hospitalization)
  Sender: FDA-Public Use
  Company Number: CA-JNJFOC-20120806588

PATIENT
  Sex: Male
  Weight: 61.1 kg

DRUGS (2)
  1. REMICADE [Suspect]
     Indication: CROHN'S DISEASE
     Route: 042
     Dates: start: 20100101
  2. ANTIBIOTICS [Concomitant]
     Indication: PROPHYLAXIS
     Route: 065

REACTIONS (1)
  - CHOLESTEATOMA [None]
